FAERS Safety Report 10055595 (Version 1)
Quarter: 2014Q2

REPORT INFORMATION
  Report Type: Spontaneous
  Country: TR (occurrence: TR)
  Receive Date: 20140403
  Receipt Date: 20140403
  Transmission Date: 20141212
  Serious: Yes (Disabling, Other)
  Sender: FDA-Public Use
  Company Number: TR-009507513-1404TUR001194

PATIENT
  Age: 71 Year
  Sex: Female

DRUGS (1)
  1. ALENDRONATE SODIUM [Suspect]
     Indication: OSTEOPOROSIS
     Route: 048

REACTIONS (3)
  - Femur fracture [Unknown]
  - Femur fracture [Recovering/Resolving]
  - Intramedullary rod insertion [Unknown]
